FAERS Safety Report 6538381-5 (Version None)
Quarter: 2010Q1

REPORT INFORMATION
  Report Type: 
  Country: None (occurrence: None)
  Receive Date: 20100114
  Receipt Date: 20100106
  Transmission Date: 20100710
  Serious: Yes (Hospitalization)
  Sender: FDA-Public Use
  Company Number: BR-ABBOTT-10P-020-0617890-00

PATIENT
  Sex: Male
  Weight: 120 kg

DRUGS (13)
  1. HUMIRA [Suspect]
     Indication: PSORIATIC ARTHROPATHY
     Route: 058
     Dates: start: 20091223
  2. LIPITOR [Concomitant]
     Indication: BLOOD TRIGLYCERIDES
     Route: 048
     Dates: start: 20091201
  3. NEOFOSFATO [Concomitant]
     Indication: DRUG USE FOR UNKNOWN INDICATION
     Route: 048
  4. SYNTHROID [Concomitant]
     Indication: THYROID DISORDER
     Route: 048
     Dates: start: 20080101
  5. SELO-ZOK [Concomitant]
     Indication: HYPERTENSION
     Route: 048
     Dates: start: 20090401
  6. FRONTAL [Concomitant]
     Indication: SEDATIVE THERAPY
     Route: 048
     Dates: start: 20090401
  7. CLOPIDOGREL [Concomitant]
     Indication: ANTICOAGULANT THERAPY
     Route: 048
  8. OMEPRAZOLE [Concomitant]
     Indication: GASTRIC DISORDER
     Route: 048
     Dates: start: 20080101
  9. CHLOROQUINE DIPHOSPHATE [Concomitant]
     Indication: MUSCULOSKELETAL PAIN
     Route: 048
  10. CYCLOBENZAPRINE 12.5MG, AMITRIPTYLINE 5MG [Concomitant]
     Indication: MUSCLE RELAXANT THERAPY
     Dosage: 12.5/5 MILLIGRAMS
     Route: 048
     Dates: start: 20091001
  11. METHOTREXATE [Concomitant]
     Indication: MUSCULOSKELETAL PAIN
     Route: 048
     Dates: start: 20091201
  12. PREDNISOLONE [Concomitant]
     Indication: PAIN
     Route: 048
     Dates: start: 20091201
  13. HALOPERIDOL [Concomitant]
     Indication: NEPHROLITHIASIS
     Route: 048

REACTIONS (4)
  - DECREASED APPETITE [None]
  - DIARRHOEA [None]
  - DRUG INEFFECTIVE [None]
  - VOMITING [None]
